FAERS Safety Report 12657717 (Version 2)
Quarter: 2016Q3

REPORT INFORMATION
  Report Type: Spontaneous
  Country: US (occurrence: US)
  Receive Date: 20160816
  Receipt Date: 20160902
  Transmission Date: 20161109
  Serious: No
  Sender: FDA-Public Use
  Company Number: US-TAKEDA-2016TUS014033

PATIENT
  Sex: Female
  Weight: 30.84 kg

DRUGS (4)
  1. PHENOBARBITAL. [Concomitant]
     Active Substance: PHENOBARBITAL
     Indication: SEIZURE
     Dosage: UNK
     Route: 048
  2. PREVACID SOLUTAB [Suspect]
     Active Substance: LANSOPRAZOLE
     Indication: GASTROOESOPHAGEAL REFLUX DISEASE
     Dosage: 30 MG, QD
     Route: 050
     Dates: start: 2014, end: 20160731
  3. DEXILANT [Suspect]
     Active Substance: DEXLANSOPRAZOLE
     Indication: GASTROOESOPHAGEAL REFLUX DISEASE
     Dosage: UNK, QD
     Route: 050
     Dates: start: 20160807
  4. ROBINUL [Concomitant]
     Active Substance: GLYCOPYRROLATE
     Indication: DROOLING
     Dosage: UNK
     Route: 048

REACTIONS (1)
  - Drug ineffective [Unknown]
